FAERS Safety Report 26099910 (Version 2)
Quarter: 2025Q4

REPORT INFORMATION
  Report Type: Spontaneous
  Country: GB (occurrence: GB)
  Receive Date: 20251128
  Receipt Date: 20251202
  Transmission Date: 20260117
  Serious: Yes (Hospitalization, Other)
  Sender: KYOWA
  Company Number: GB-KYOWAKIRIN-2025KK022564

PATIENT

DRUGS (2)
  1. POTELIGEO [Suspect]
     Active Substance: MOGAMULIZUMAB-KPKC
     Indication: Cutaneous T-cell lymphoma
     Dosage: UNK
     Route: 065
  2. GEMCITABINE [Suspect]
     Active Substance: GEMCITABINE
     Indication: Product used for unknown indication
     Dosage: (FIRST CYCLE)
     Route: 065

REACTIONS (3)
  - Sepsis [Unknown]
  - Keratitis fungal [Unknown]
  - Bacterial endophthalmitis [Unknown]
